FAERS Safety Report 7003316-8 (Version None)
Quarter: 2010Q3

REPORT INFORMATION
  Report Type: 
  Country: None (occurrence: None)
  Receive Date: 20100920
  Receipt Date: 20100618
  Transmission Date: 20110219
  Serious: No
  Sender: FDA-Public Use
  Company Number: A0866088A

PATIENT
  Age: 52 Year
  Sex: Female

DRUGS (9)
  1. LAMICTAL [Suspect]
     Indication: EPILEPSY
     Dosage: 50MG PER DAY
     Route: 048
     Dates: start: 20100604
  2. LYRICA [Concomitant]
  3. SEASONIQUE [Concomitant]
  4. FOLIC ACID [Concomitant]
  5. BENICAR [Concomitant]
  6. ASPIRIN [Concomitant]
  7. ALPRAZOLAM [Concomitant]
  8. ADVIL LIQUI-GELS [Concomitant]
  9. OLUX E FOAM (EMULSION AEROSOL FOAM) [Concomitant]

REACTIONS (7)
  - ANAL PRURITUS [None]
  - CONSTIPATION [None]
  - GENITAL PAIN [None]
  - OEDEMA GENITAL [None]
  - POLLAKIURIA [None]
  - VULVOVAGINAL DISCOMFORT [None]
  - VULVOVAGINAL PRURITUS [None]
